FAERS Safety Report 16441609 (Version 1)
Quarter: 2019Q2

REPORT INFORMATION
  Report Type: Spontaneous
  Country: GB (occurrence: GB)
  Receive Date: 20190617
  Receipt Date: 20190617
  Transmission Date: 20190711
  Serious: Yes (Death)
  Sender: FDA-Public Use
  Company Number: GB-MYLANLABS-2019M1056633

PATIENT
  Age: 16 Year
  Sex: Female
  Weight: 64 kg

DRUGS (5)
  1. BRIVIACT [Suspect]
     Active Substance: BRIVARACETAM
     Indication: EPILEPSY
     Dosage: 25 MILLIGRAM, BID (500 MG, QD)
     Route: 048
     Dates: start: 20180601
  2. LEVETIRACETAM. [Suspect]
     Active Substance: LEVETIRACETAM
     Indication: EPILEPSY
     Dosage: 2 DOSAGE FORM, QD,250 MG AM AND 500MG PM, 2X/DAY (BID)
     Route: 048
     Dates: start: 20130722
  3. CLOBAZAM. [Suspect]
     Active Substance: CLOBAZAM
     Indication: EPILEPSY
     Dosage: 10 MG, PM; ONCE DAILY (QD)
     Route: 048
     Dates: start: 20170630, end: 20180615
  4. MELATONIN [Suspect]
     Active Substance: MELATONIN
     Indication: SOMNOLENCE
     Dosage: 6 MG, PM ONCE DAILY (QD)
     Route: 048
     Dates: start: 20170516, end: 20180615
  5. ZONISAMIDE. [Suspect]
     Active Substance: ZONISAMIDE
     Indication: EPILEPSY
     Dosage: 250 MILLIGRAM, BID (500 MG, BID),250 MG, 2X/DAY (BID)
     Route: 048
     Dates: start: 20171106, end: 20180615

REACTIONS (2)
  - Off label use [Unknown]
  - Death [Fatal]

NARRATIVE: CASE EVENT DATE: 20180615
